FAERS Safety Report 13264281 (Version 1)
Quarter: 2017Q1

REPORT INFORMATION
  Report Type: Spontaneous
  Country: US (occurrence: US)
  Receive Date: 20170223
  Receipt Date: 20170223
  Transmission Date: 20170428
  Serious: Yes (Life-Threatening, Disabling, Other)
  Sender: FDA-Public Use
  Company Number: None

PATIENT
  Age: 51 Year
  Sex: Female
  Weight: 67.65 kg

DRUGS (3)
  1. OMEPRAZOL [Concomitant]
     Active Substance: OMEPRAZOLE
  2. DOTAREM [Suspect]
     Active Substance: GADOTERATE MEGLUMINE
     Indication: SCAN WITH CONTRAST
     Dates: start: 20170127, end: 20170127
  3. DOTAREM [Suspect]
     Active Substance: GADOTERATE MEGLUMINE
     Indication: NUCLEAR MAGNETIC RESONANCE IMAGING
     Dates: start: 20170127, end: 20170127

REACTIONS (2)
  - Anaphylactic reaction [None]
  - Contrast media reaction [None]

NARRATIVE: CASE EVENT DATE: 20170127
